FAERS Safety Report 10511283 (Version 2)
Quarter: 2014Q4

REPORT INFORMATION
  Report Type: Spontaneous
  Country: US (occurrence: US)
  Receive Date: 20141010
  Receipt Date: 20141010
  Transmission Date: 20150528
  Serious: Yes (Other)
  Sender: FDA-Public Use
  Company Number: US-RB-069304-14

PATIENT
  Age: 31 Year
  Sex: Female

DRUGS (1)
  1. MUCINEX FAST-MAX SEVERE COLD [Suspect]
     Active Substance: ACETAMINOPHEN\DEXTROMETHORPHAN HYDROBROMIDE\GUAIFENESIN\PHENYLEPHRINE HYDROCHLORIDE
     Indication: PRODUCT USED FOR UNKNOWN INDICATION
     Dosage: TOOK 1 DOSE ON 25-SEP-2014 AT ABOUT 5PM
     Route: 065
     Dates: start: 20140925

REACTIONS (10)
  - Vomiting [Recovered/Resolved]
  - Nausea [Recovered/Resolved]
  - Swelling [Recovered/Resolved]
  - Rash [Recovered/Resolved]
  - Anaphylactic reaction [Recovered/Resolved]
  - Erythema [Recovered/Resolved]
  - Erythema [None]
  - Swollen tongue [Recovered/Resolved]
  - Local swelling [Recovered/Resolved]
  - Swelling face [Recovered/Resolved]

NARRATIVE: CASE EVENT DATE: 20140925
